FAERS Safety Report 17396865 (Version 4)
Quarter: 2021Q4

REPORT INFORMATION
  Report Type: Report from Study
  Country: JP (occurrence: JP)
  Receive Date: 20200210
  Receipt Date: 20211118
  Transmission Date: 20220303
  Serious: Yes (Hospitalization, Other)
  Sender: FDA-Public Use
  Company Number: JP-ALEXION-A201815373

PATIENT
  Age: 8 Year
  Sex: Female
  Weight: 11 kg

DRUGS (25)
  1. STRENSIQ [Suspect]
     Active Substance: ASFOTASE ALFA
     Indication: Hypophosphatasia
     Dosage: 2 MG/KG, TIW
     Route: 058
     Dates: start: 20151002, end: 20181102
  2. STRENSIQ [Suspect]
     Active Substance: ASFOTASE ALFA
     Dosage: 1.8 MG/KG, UNK
     Route: 058
     Dates: start: 20181107, end: 20181107
  3. STRENSIQ [Suspect]
     Active Substance: ASFOTASE ALFA
     Dosage: 1.6 MG/KG, TIW
     Route: 058
     Dates: start: 20181109, end: 20181130
  4. STRENSIQ [Suspect]
     Active Substance: ASFOTASE ALFA
     Dosage: 2 MG/KG, TIW
     Route: 058
     Dates: start: 20181203
  5. PHENOBAL                           /00023201/ [Concomitant]
     Indication: Hypophosphatasia
     Dosage: UNK
     Route: 048
  6. PHENOBAL                           /00023201/ [Concomitant]
     Dosage: 55 MG, BID
     Route: 048
     Dates: start: 20180802, end: 20180809
  7. PHENOBAL                           /00023201/ [Concomitant]
     Dosage: 27.5 MG, BID
     Route: 048
     Dates: start: 20180809, end: 20180819
  8. PHENOBAL                           /00023201/ [Concomitant]
     Dosage: 44 MG, BID
     Route: 048
     Dates: start: 20180817, end: 20190226
  9. PHENOBAL                           /00023201/ [Concomitant]
     Dosage: 45 MG, BID
     Route: 048
     Dates: start: 20190227
  10. RIVOTRIL [Concomitant]
     Active Substance: CLONAZEPAM
     Indication: Hypophosphatasia
     Route: 048
  11. RIVOTRIL [Concomitant]
     Active Substance: CLONAZEPAM
     Dosage: 2.5 MG, BID
     Route: 048
     Dates: start: 20180802
  12. LEVETIRACETAM [Concomitant]
     Active Substance: LEVETIRACETAM
     Indication: Hypophosphatasia
     Dosage: 50 UNK, UNK
     Route: 048
  13. LEVETIRACETAM [Concomitant]
     Active Substance: LEVETIRACETAM
     Dosage: 50 MG, BID
     Route: 048
     Dates: start: 20180802, end: 20180816
  14. LEVETIRACETAM [Concomitant]
     Active Substance: LEVETIRACETAM
     Dosage: 110 MG, BID
     Route: 048
     Dates: start: 20180817, end: 20190108
  15. LEVETIRACETAM [Concomitant]
     Active Substance: LEVETIRACETAM
     Dosage: 150 MG, BID
     Route: 048
     Dates: start: 20190109, end: 20190216
  16. LEVETIRACETAM [Concomitant]
     Active Substance: LEVETIRACETAM
     Dosage: 225 MG, BID
     Route: 048
     Dates: start: 20190217
  17. ALFAROL [Concomitant]
     Active Substance: ALFACALCIDOL
     Indication: Hypophosphatasia
     Dosage: 1 ML, QD
     Route: 048
     Dates: end: 20180912
  18. ALFAROL [Concomitant]
     Active Substance: ALFACALCIDOL
     Dosage: 2 ML, QD
     Route: 048
     Dates: start: 20180913, end: 20181004
  19. ALFAROL [Concomitant]
     Active Substance: ALFACALCIDOL
     Dosage: 1 ML, QD
     Route: 048
     Dates: start: 20181005, end: 20181115
  20. PYRIDOXINE [Concomitant]
     Active Substance: PYRIDOXINE
     Indication: Hypophosphatasia
     Dosage: 225 MG, BID
     Route: 048
     Dates: end: 20190120
  21. PYRIDOXINE HYDROCHLORIDE [Concomitant]
     Active Substance: PYRIDOXINE HYDROCHLORIDE
     Indication: Hypophosphatasia
     Dosage: 225 MG, BID
     Route: 048
     Dates: start: 20190121
  22. MUCOSAL                            /00082801/ [Concomitant]
     Indication: Prophylaxis
     Dosage: 4.5 MG, BID
     Route: 048
  23. MUCOSAL                            /00082801/ [Concomitant]
     Dosage: 3 MG, TID
     Route: 048
  24. CARBOCYSTEINE [Concomitant]
     Active Substance: CARBOCYSTEINE
     Indication: Prophylaxis
     Dosage: 100 MG, TID
     Route: 048
  25. LEVOCARNITINE [Concomitant]
     Active Substance: LEVOCARNITINE
     Indication: Prophylaxis
     Dosage: 1 ML, TID
     Route: 048

REACTIONS (6)
  - Pneumonia bacterial [Recovered/Resolved]
  - Pneumonia [Recovered/Resolved]
  - Injection site warmth [Recovered/Resolved]
  - Insomnia [Recovering/Resolving]
  - Injection site induration [Recovered/Resolved]
  - Injection site erythema [Recovered/Resolved]

NARRATIVE: CASE EVENT DATE: 20181029
